FAERS Safety Report 25727154 (Version 1)
Quarter: 2025Q3

REPORT INFORMATION
  Report Type: Spontaneous
  Country: US (occurrence: None)
  Receive Date: 20250825
  Receipt Date: 20250825
  Transmission Date: 20251020
  Serious: Yes (Hospitalization)
  Sender: FDA-CTU
  Company Number: None

PATIENT
  Age: 70 Year
  Sex: Male

DRUGS (8)
  1. DALFAMPRIDINE [Suspect]
     Active Substance: DALFAMPRIDINE
     Indication: Multiple sclerosis
     Dosage: 10 MG TWICE  DAY ORAL
     Route: 048
  2. calcium 600 mg [Concomitant]
  3. vitamin d3 2000 units [Concomitant]
  4. vitamin b12 1000mcg [Concomitant]
  5. divalproex dr 500 mg [Concomitant]
  6. MAGNESIUM OXIDE [Concomitant]
     Active Substance: MAGNESIUM OXIDE
  7. AMANTADINE [Concomitant]
     Active Substance: AMANTADINE
  8. LOSARTAN [Concomitant]
     Active Substance: LOSARTAN

REACTIONS (3)
  - Fall [None]
  - Rib fracture [None]
  - Rhabdomyolysis [None]

NARRATIVE: CASE EVENT DATE: 20250820
